FAERS Safety Report 18385777 (Version 1)
Quarter: 2020Q4

REPORT INFORMATION
  Report Type: Spontaneous
  Country: IE (occurrence: IE)
  Receive Date: 20201015
  Receipt Date: 20201015
  Transmission Date: 20210114
  Serious: Yes (Life-Threatening, Hospitalization, Other)
  Sender: FDA-Public Use
  Company Number: IE-ADVANZ PHARMA-202009009306

PATIENT

DRUGS (5)
  1. PREDNISOLONE. [Suspect]
     Active Substance: PREDNISOLONE
     Indication: GRAFT VERSUS HOST DISEASE
     Dosage: 10 MG, QD
  2. CICLOSPORIN [Suspect]
     Active Substance: CYCLOSPORINE
     Dosage: 50 MG, BID
  3. PHENOXYMETHYLPENICILLIN [Concomitant]
     Active Substance: PENICILLIN V
     Dosage: 333 MG, BID
  4. VALACICLOVIR [Concomitant]
     Active Substance: VALACYCLOVIR HYDROCHLORIDE
     Dosage: 500 MG, QD
  5. ATOVAQUONE. [Concomitant]
     Active Substance: ATOVAQUONE
     Dosage: 750 MG, BID

REACTIONS (7)
  - Generalised tonic-clonic seizure [Recovering/Resolving]
  - Acanthamoeba infection [Recovering/Resolving]
  - Granuloma [Recovering/Resolving]
  - Vasogenic cerebral oedema [Recovering/Resolving]
  - Brain injury [Recovering/Resolving]
  - Intracranial mass [Recovering/Resolving]
  - Parasitic encephalitis [Recovering/Resolving]
